FAERS Safety Report 12975649 (Version 1)
Quarter: 2016Q4

REPORT INFORMATION
  Report Type: Spontaneous
  Country: US (occurrence: US)
  Receive Date: 20161125
  Receipt Date: 20161125
  Transmission Date: 20170207
  Serious: Yes (Life-Threatening, Hospitalization)
  Sender: FDA-Public Use
  Company Number: US-ELI_LILLY_AND_COMPANY-US201611008230

PATIENT
  Age: 31 Year
  Sex: Male

DRUGS (3)
  1. HUMALOG [Suspect]
     Active Substance: INSULIN LISPRO
     Dosage: UNK, PRN
     Route: 065
  2. HUMALOG [Suspect]
     Active Substance: INSULIN LISPRO
     Indication: GLUCOSE TOLERANCE IMPAIRED
     Dosage: UNK, PRN
     Route: 065
     Dates: start: 201601
  3. LEVEMIR [Concomitant]
     Active Substance: INSULIN DETEMIR

REACTIONS (10)
  - Seizure [Unknown]
  - Cervical vertebral fracture [Unknown]
  - Joint range of motion decreased [Recovering/Resolving]
  - Staphylococcal infection [Unknown]
  - Blood glucose increased [Unknown]
  - Seizure [Unknown]
  - Fall [Unknown]
  - Gait disturbance [Unknown]
  - Incorrect dose administered [Unknown]
  - Diabetic ketoacidosis [Unknown]

NARRATIVE: CASE EVENT DATE: 201601
